FAERS Safety Report 7053655-X (Version None)
Quarter: 2010Q4

REPORT INFORMATION
  Report Type: 
  Country: None (occurrence: None)
  Receive Date: 20101020
  Receipt Date: 20101018
  Transmission Date: 20110411
  Serious: Yes (Hospitalization)
  Sender: FDA-Public Use
  Company Number: IT-ROCHE-734492

PATIENT
  Sex: Male

DRUGS (1)
  1. LARIAM [Suspect]
     Indication: MALARIA PROPHYLAXIS
     Dosage: ROUTE: OS, FREQUENCY: TOTAL
     Route: 048
     Dates: start: 20091016, end: 20091017

REACTIONS (2)
  - HYPEREOSINOPHILIC SYNDROME [None]
  - INTERSTITIAL LUNG DISEASE [None]
